FAERS Safety Report 10988491 (Version 2)
Quarter: 2015Q2

REPORT INFORMATION
  Report Type: Spontaneous
  Country: US (occurrence: US)
  Receive Date: 20150404
  Receipt Date: 20150525
  Transmission Date: 20150821
  Serious: No
  Sender: FDA-Public Use
  Company Number: US-JNJFOC-20131103616

PATIENT
  Age: 33 Year
  Sex: Male
  Weight: 121.56 kg

DRUGS (1)
  1. REMICADE [Suspect]
     Active Substance: INFLIXIMAB
     Indication: RHEUMATOID ARTHRITIS
     Dosage: 1200MG TOTAL DOSE
     Route: 042

REACTIONS (7)
  - Erythema [Unknown]
  - Dyspnoea [Unknown]
  - Lip swelling [Unknown]
  - Chest pain [Unknown]
  - Infusion related reaction [Unknown]
  - Mouth swelling [Unknown]
  - Pruritus [Unknown]
